FAERS Safety Report 9782541 (Version 1)
Quarter: 2013Q4

REPORT INFORMATION
  Report Type: Spontaneous
  Country: NO (occurrence: None)
  Receive Date: 20131220
  Receipt Date: 20131220
  Transmission Date: 20140711
  Serious: Yes (Life-Threatening, Hospitalization)
  Sender: FDA-Public Use
  Company Number: AUR-APL-2013-10492

PATIENT
  Age: 82 Year
  Sex: Female

DRUGS (1)
  1. METFORMIN (METFORMIN) [Suspect]
     Indication: DIABETES MELLITUS
     Route: 048
     Dates: start: 2006, end: 20131102

REACTIONS (7)
  - Nausea [None]
  - Diarrhoea [None]
  - Abdominal pain [None]
  - Renal failure [None]
  - Blood glucose increased [None]
  - Glomerular filtration rate decreased [None]
  - Haemoglobin decreased [None]
